FAERS Safety Report 22344701 (Version 1)
Quarter: 2023Q2

REPORT INFORMATION
  Report Type: Spontaneous
  Country: US (occurrence: None)
  Receive Date: 20230519
  Receipt Date: 20230519
  Transmission Date: 20230722
  Serious: Yes (Other)
  Sender: FDA-Public Use
  Company Number: None

PATIENT
  Age: 67 Year
  Sex: Female
  Weight: 74.25 kg

DRUGS (7)
  1. VARITHENA [Suspect]
     Active Substance: POLIDOCANOL
     Indication: Peripheral venous disease
     Dates: start: 20210920
  2. XARELTO [Concomitant]
     Active Substance: RIVAROXABAN
  3. METOPROLOL [Concomitant]
     Active Substance: METOPROLOL
  4. FLECAINIDE [Concomitant]
     Active Substance: FLECAINIDE
  5. CALCIUM [Concomitant]
     Active Substance: CALCIUM
  6. VITAMINS [Concomitant]
     Active Substance: VITAMINS
  7. VITAMIN D [Concomitant]
     Active Substance: VITAMIN D NOS

REACTIONS (4)
  - Post procedural erythema [None]
  - Post procedural swelling [None]
  - Oedema peripheral [None]
  - Pain [None]

NARRATIVE: CASE EVENT DATE: 20210920
